FAERS Safety Report 6368844-7 (Version None)
Quarter: 2009Q3

REPORT INFORMATION
  Report Type: 
  Country: None (occurrence: None)
  Receive Date: 20090918
  Receipt Date: 20090918
  Transmission Date: 20100115
  Serious: Yes (Other)
  Sender: FDA-Public Use
  Company Number: None

PATIENT
  Age: 57 Year
  Sex: Female
  Weight: 90.7194 kg

DRUGS (1)
  1. ZICAM NASAL GEL - FOR COLDS [Suspect]
     Indication: NASOPHARYNGITIS
     Dosage: APPLY NASAL GEL TO NOSTRILS EVERY 12 HOURS NASAL
     Route: 045
     Dates: start: 20090501, end: 20090504

REACTIONS (3)
  - DRUG INEFFECTIVE [None]
  - HYPOGEUSIA [None]
  - HYPOSMIA [None]
